FAERS Safety Report 5864264-X (Version None)
Quarter: 2008Q3

REPORT INFORMATION
  Report Type: 
  Country: None (occurrence: None)
  Receive Date: 20080829
  Receipt Date: 20080604
  Transmission Date: 20090109
  Serious: No
  Sender: FDA-Public Use
  Company Number: US-ABBOTT-08P-163-0455055-00

PATIENT
  Sex: Male
  Weight: 79.45 kg

DRUGS (9)
  1. SIMCOR [Suspect]
     Indication: LOW DENSITY LIPOPROTEIN INCREASED
     Dosage: UNIT: 500/20 MILLIGRAMS
     Route: 048
     Dates: start: 20080603, end: 20080606
  2. SIMCOR [Suspect]
     Indication: HIGH DENSITY LIPOPROTEIN DECREASED
  3. ACETYLSALICYLIC ACID SRT [Concomitant]
     Indication: DRUG USE FOR UNKNOWN INDICATION
  4. TERAZOSIN HYDROCHLORIDE [Concomitant]
     Indication: DIURETIC THERAPY
  5. FISH OIL [Concomitant]
     Indication: DRUG USE FOR UNKNOWN INDICATION
  6. CO-Q10 PLUS [Concomitant]
     Indication: DRUG USE FOR UNKNOWN INDICATION
  7. IRON FREE MULTIVITAMIN [Concomitant]
     Indication: DRUG USE FOR UNKNOWN INDICATION
  8. GARLIC AND PARSLEY PILL [Concomitant]
     Indication: BLOOD CHOLESTEROL INCREASED
  9. OLMESARTAN MEDOXOMIL [Concomitant]
     Indication: HYPERTENSION

REACTIONS (1)
  - RASH [None]
